FAERS Safety Report 4781823-6 (Version None)
Quarter: 2005Q3

REPORT INFORMATION
  Report Type: 
  Country: None (occurrence: None)
  Receive Date: 20050914
  Receipt Date: 20050416
  Transmission Date: 20060218
  Serious: Yes (Hospitalization)
  Sender: FDA-Public Use
  Company Number: 163-20785-05040393

PATIENT
  Age: 67 Year
  Sex: Male
  Weight: 115 kg

DRUGS (15)
  1. THALOMID [Suspect]
     Indication: MULTIPLE MYELOMA
     Dosage: ORAL
     Route: 048
     Dates: start: 20040911
  2. THALOMID [Suspect]
     Indication: MULTIPLE MYELOMA
     Dosage: ORAL
     Route: 048
     Dates: start: 20041011
  3. BORTEZOMIB (BORTEZOMIB) (UNKNOWN) [Suspect]
     Indication: MULTIPLE MYELOMA
     Dates: start: 20040911
  4. BORTEZOMIB (BORTEZOMIB) (UNKNOWN) [Suspect]
     Indication: MULTIPLE MYELOMA
     Dates: start: 20041011
  5. DEXAMETHASONE [Suspect]
     Indication: MULTIPLE MYELOMA
     Dates: start: 20040911
  6. DEXAMETHASONE [Suspect]
     Indication: MULTIPLE MYELOMA
     Dates: start: 20041011
  7. CISPLATIN [Suspect]
     Indication: MULTIPLE MYELOMA
     Dates: start: 20040911
  8. CISPLATIN [Suspect]
     Indication: MULTIPLE MYELOMA
     Dates: start: 20041011
  9. ADRIAMYCIN PFS [Suspect]
     Indication: MULTIPLE MYELOMA
     Dates: start: 20040911
  10. ADRIAMYCIN PFS [Suspect]
     Indication: MULTIPLE MYELOMA
     Dates: start: 20041011
  11. CYCLOPHOSPHAMIDE [Suspect]
     Indication: MULTIPLE MYELOMA
     Dates: start: 20040911
  12. CYCLOPHOSPHAMIDE [Suspect]
     Indication: MULTIPLE MYELOMA
     Dates: start: 20041011
  13. ETOPOSIDE [Suspect]
     Indication: MULTIPLE MYELOMA
     Dates: start: 20040911
  14. ETOPOSIDE [Suspect]
     Indication: MULTIPLE MYELOMA
     Dates: start: 20041011
  15. MELPHALAN (MELPHALAN) [Suspect]
     Indication: MULTIPLE MYELOMA
     Dosage: 400 MG, INTRAVENOUS
     Route: 042
     Dates: start: 20041123, end: 20041123

REACTIONS (1)
  - FLUID REPLACEMENT [None]
